FAERS Safety Report 5377717-8 (Version None)
Quarter: 2007Q3

REPORT INFORMATION
  Report Type: 
  Country: None (occurrence: None)
  Receive Date: 20070703
  Receipt Date: 20070625
  Transmission Date: 20080115
  Serious: Yes (Death, Hospitalization)
  Sender: FDA-Public Use
  Company Number: NL-BOEHRINGER INGELHEIM PHARMACEUTICALS, INC.-2007-NL-00242NL

PATIENT
  Sex: Male
  Weight: 70 kg

DRUGS (10)
  1. SIFROL 0.088MG [Suspect]
     Indication: RESTLESS LEGS SYNDROME
     Route: 048
     Dates: start: 20070410
  2. PERINDOPRIL ERBUMINE [Concomitant]
     Indication: CARDIAC FAILURE
     Route: 048
  3. BUMETANIDE [Concomitant]
     Indication: CARDIAC FAILURE
     Route: 048
  4. CARVEDILOL [Concomitant]
     Indication: CARDIAC FAILURE
     Route: 048
  5. COLCHICINE [Concomitant]
     Indication: GOUT
     Route: 048
  6. ACENOCOUMAROL [Concomitant]
     Indication: ARRHYTHMIA
     Route: 048
  7. FRISIUM [Concomitant]
     Indication: EPILEPSY
     Route: 048
  8. DEPAKENE [Concomitant]
     Indication: EPILEPSY
     Route: 048
  9. AMIODARONE [Concomitant]
     Indication: CARDIAC FAILURE
     Route: 048
  10. ALLOPURINOL [Concomitant]
     Indication: GOUT
     Route: 048

REACTIONS (2)
  - CARDIAC FAILURE [None]
  - OEDEMA PERIPHERAL [None]
